FAERS Safety Report 25388708 (Version 2)
Quarter: 2025Q2

REPORT INFORMATION
  Report Type: Spontaneous
  Country: US (occurrence: US)
  Receive Date: 20250603
  Receipt Date: 20250610
  Transmission Date: 20250716
  Serious: Yes (Hospitalization, Other)
  Sender: ABBVIE
  Company Number: US-ABBVIE-6303207

PATIENT
  Age: 72 Year
  Sex: Female

DRUGS (1)
  1. LINZESS [Suspect]
     Active Substance: LINACLOTIDE
     Indication: Product used for unknown indication
     Route: 048
     Dates: start: 202505, end: 202505

REACTIONS (9)
  - Pyrexia [Unknown]
  - Diarrhoea [Unknown]
  - Neoplasm malignant [Unknown]
  - Illness [Unknown]
  - Fatigue [Unknown]
  - Erythema [Unknown]
  - Dehydration [Unknown]
  - Feeling abnormal [Unknown]
  - Seizure [Unknown]

NARRATIVE: CASE EVENT DATE: 20250501
